FAERS Safety Report 9863391 (Version 1)
Quarter: 2014Q1

REPORT INFORMATION
  Report Type: Report from Study
  Country: DE (occurrence: DE)
  Receive Date: 20140203
  Receipt Date: 20140203
  Transmission Date: 20141002
  Serious: Yes (Death, Hospitalization, Other)
  Sender: FDA-Public Use
  Company Number: DE-ROCHE-1340900

PATIENT
  Age: 54 Year
  Sex: Male

DRUGS (2)
  1. BEVACIZUMAB [Suspect]
     Indication: COLON CANCER
     Route: 065
  2. IRINOTECAN [Suspect]
     Indication: COLON CANCER
     Route: 042
     Dates: start: 20130826

REACTIONS (4)
  - Neoplasm progression [Fatal]
  - Acute hepatic failure [Not Recovered/Not Resolved]
  - Diarrhoea [Not Recovered/Not Resolved]
  - Renal failure acute [Not Recovered/Not Resolved]
